FAERS Safety Report 12655025 (Version 1)
Quarter: 2016Q3

REPORT INFORMATION
  Report Type: Spontaneous
  Country: FR (occurrence: US)
  Receive Date: 20160816
  Receipt Date: 20160816
  Transmission Date: 20161109
  Serious: Yes (Hospitalization)
  Sender: FDA-Public Use
  Company Number: US-ASTRAZENECA-2016SE86889

PATIENT
  Age: 48 Year
  Sex: Female

DRUGS (9)
  1. INEXIUM [Suspect]
     Active Substance: ESOMEPRAZOLE
     Dosage: UNK
     Route: 048
  2. KETAMINE [Suspect]
     Active Substance: KETAMINE
     Route: 041
     Dates: start: 201410, end: 201411
  3. KETAMINE [Suspect]
     Active Substance: KETAMINE
     Route: 041
     Dates: start: 201501, end: 201502
  4. PARACETAMOL [Suspect]
     Active Substance: ACETAMINOPHEN
     Route: 065
  5. KETAMINE [Suspect]
     Active Substance: KETAMINE
     Route: 041
     Dates: start: 201407, end: 201407
  6. LERCAN [Suspect]
     Active Substance: LERCANIDIPINE
     Route: 065
  7. LYRICA [Suspect]
     Active Substance: PREGABALIN
     Dosage: UNK
     Route: 048
     Dates: start: 201209, end: 20150101
  8. HYDROCORTISONE. [Suspect]
     Active Substance: HYDROCORTISONE
     Route: 065
  9. SKENAN [Suspect]
     Active Substance: MORPHINE SULFATE
     Route: 048

REACTIONS (1)
  - Hepatocellular injury [Recovered/Resolved]

NARRATIVE: CASE EVENT DATE: 20150323
